FAERS Safety Report 9642322 (Version 1)
Quarter: 2013Q4

REPORT INFORMATION
  Report Type: Report from Study
  Country: US (occurrence: US)
  Receive Date: 20131024
  Receipt Date: 20131024
  Transmission Date: 20140711
  Serious: Yes (Disabling)
  Sender: FDA-Public Use
  Company Number: US-ROCHE-1292874

PATIENT
  Age: 60 Year
  Sex: Male
  Weight: 110.78 kg

DRUGS (1)
  1. LUCENTIS [Suspect]
     Indication: DIABETIC RETINAL OEDEMA
     Dosage: BOTH EYES
     Route: 065
     Dates: start: 20131009

REACTIONS (8)
  - Pain [Recovered/Resolved]
  - Dizziness [Unknown]
  - Lacrimation increased [Not Recovered/Not Resolved]
  - Somnolence [Unknown]
  - Rhinorrhoea [Unknown]
  - Photophobia [Unknown]
  - Eye swelling [Unknown]
  - Blindness [Unknown]
